FAERS Safety Report 5557955-1 (Version None)
Quarter: 2007Q4

REPORT INFORMATION
  Report Type: 
  Country: None (occurrence: None)
  Receive Date: 20071214
  Receipt Date: 20071206
  Transmission Date: 20080405
  Serious: Yes (Death, Other)
  Sender: FDA-Public Use
  Company Number: US-ELI_LILLY_AND_COMPANY-US200712001437

PATIENT
  Age: 55 Year
  Sex: Male

DRUGS (2)
  1. XIGRIS [Suspect]
     Dosage: OTHER (1ST COURSE)
     Route: 042
     Dates: start: 20071101, end: 20071101
  2. XIGRIS [Suspect]
     Dosage: OTHER, 2ND COURSE
     Route: 042
     Dates: start: 20071201, end: 20071201

REACTIONS (2)
  - DEATH [None]
  - GENERAL PHYSICAL HEALTH DETERIORATION [None]
